FAERS Safety Report 9463994 (Version 1)
Quarter: 2013Q3

REPORT INFORMATION
  Report Type: Spontaneous
  Country: US (occurrence: US)
  Receive Date: 20130819
  Receipt Date: 20130819
  Transmission Date: 20140515
  Serious: Yes (Hospitalization)
  Sender: FDA-Public Use
  Company Number: US-BRISTOL-MYERS SQUIBB COMPANY-17343971

PATIENT
  Age: 66 Year
  Sex: Female

DRUGS (1)
  1. REYATAZ [Suspect]
     Dosage: 1 DF = 300 UNITS NOS

REACTIONS (1)
  - Hospitalisation [Unknown]
